FAERS Safety Report 16691086 (Version 1)
Quarter: 2019Q3

REPORT INFORMATION
  Report Type: Spontaneous
  Country: DK (occurrence: DK)
  Receive Date: 20190812
  Receipt Date: 20190812
  Transmission Date: 20191004
  Serious: Yes (Life-Threatening)
  Sender: FDA-Public Use
  Company Number: DK-TEVA-2019-DK-1090765

PATIENT
  Age: 52 Year
  Sex: Male
  Weight: 73 kg

DRUGS (1)
  1. TRISENOX [Suspect]
     Active Substance: ARSENIC TRIOXIDE
     Indication: ACUTE PROMYELOCYTIC LEUKAEMIA
     Dosage: DOSAGE: DOES NOT APPEAR IN THE MEDICAL RECORD. STRENGTH: 1 MG / ML.
     Dates: start: 20181102, end: 20181107

REACTIONS (2)
  - Nephropathy [Recovered/Resolved]
  - Device dependence [Recovered/Resolved]

NARRATIVE: CASE EVENT DATE: 20181104
